FAERS Safety Report 15805598 (Version 2)
Quarter: 2019Q1

REPORT INFORMATION
  Report Type: Spontaneous
  Country: US (occurrence: US)
  Receive Date: 20190110
  Receipt Date: 20190207
  Transmission Date: 20190417
  Serious: Yes (Life-Threatening, Hospitalization, Other)
  Sender: FDA-Public Use
  Company Number: US-DRREDDYS-USA/USA/19/0106679

PATIENT
  Age: 60 Year
  Sex: Female

DRUGS (2)
  1. ZIPRASIDONE. [Suspect]
     Active Substance: ZIPRASIDONE
     Indication: BIPOLAR DISORDER
     Route: 065
  2. SERTRALINE [Suspect]
     Active Substance: SERTRALINE HYDROCHLORIDE
     Indication: BIPOLAR DISORDER

REACTIONS (5)
  - Hypotension [Recovered/Resolved]
  - Blood creatine phosphokinase increased [Recovered/Resolved]
  - Ventricular tachycardia [Recovered/Resolved]
  - Serotonin syndrome [Recovered/Resolved]
  - Hypokalaemia [Recovered/Resolved]
